FAERS Safety Report 25787326 (Version 3)
Quarter: 2025Q4

REPORT INFORMATION
  Report Type: Report from Study
  Country: US (occurrence: US)
  Receive Date: 20250910
  Receipt Date: 20251230
  Transmission Date: 20260118
  Serious: Yes (Other)
  Sender: ALEXION PHARMACEUTICALS
  Company Number: US-AstraZeneca-CH-00942460A

PATIENT
  Sex: Female

DRUGS (1)
  1. STRENSIQ [Suspect]
     Active Substance: ASFOTASE ALFA
     Dosage: UNK
     Route: 065

REACTIONS (6)
  - Bell^s palsy [Unknown]
  - Systemic lupus erythematosus [Unknown]
  - Dysphagia [Unknown]
  - Hypoaesthesia [Unknown]
  - Injection site pain [Unknown]
  - Paraesthesia [Unknown]
